FAERS Safety Report 22165172 (Version 2)
Quarter: 2023Q2

REPORT INFORMATION
  Report Type: Spontaneous
  Country: JP (occurrence: JP)
  Receive Date: 20230403
  Receipt Date: 20230410
  Transmission Date: 20230722
  Serious: Yes (Life-Threatening, Hospitalization, Other)
  Sender: FDA-Public Use
  Company Number: JP-TAIHO-2023-002256

PATIENT
  Age: 66 Year
  Sex: Male

DRUGS (3)
  1. ABRAXANE [Suspect]
     Active Substance: PACLITAXEL
     Indication: Pancreatic carcinoma
     Dosage: NI, 3 CYCLES
     Route: 041
  2. GEMCITABINE HYDROCHLORIDE [Suspect]
     Active Substance: GEMCITABINE HYDROCHLORIDE
     Indication: Pancreatic carcinoma
     Dosage: NI, 3 CYCLES
  3. BETAMETHASONE [Concomitant]
     Active Substance: BETAMETHASONE
     Indication: Colitis ulcerative
     Dosage: NI

REACTIONS (1)
  - Colitis ulcerative [Unknown]
